FAERS Safety Report 6539235-0 (Version None)
Quarter: 2010Q1

REPORT INFORMATION
  Report Type: 
  Country: None (occurrence: None)
  Receive Date: 20100115
  Receipt Date: 20100108
  Transmission Date: 20100710
  Serious: Yes (Hospitalization)
  Sender: FDA-Public Use
  Company Number: FR-JNJFOC-20100103410

PATIENT
  Age: 39 Year
  Sex: Female

DRUGS (6)
  1. REMICADE [Suspect]
     Route: 042
  2. REMICADE [Suspect]
     Indication: CROHN'S DISEASE
     Route: 042
  3. PNEUMOVAX 23 [Suspect]
     Indication: PROPHYLAXIS
  4. FLU VACCINE [Suspect]
     Indication: PROPHYLAXIS
  5. IMUREL [Concomitant]
     Dosage: TAKEN FOR 10 YEARS AND STOPPED 1 YEAR BEFORE AE
  6. LEXOMIL [Concomitant]
     Dosage: PRN

REACTIONS (2)
  - MYELITIS [None]
  - PARAESTHESIA [None]
